FAERS Safety Report 14842138 (Version 7)
Quarter: 2019Q2

REPORT INFORMATION
  Report Type: Spontaneous
  Country: NL (occurrence: NL)
  Receive Date: 20180503
  Receipt Date: 20190409
  Transmission Date: 20190711
  Serious: Yes (Congenital Anomaly, Other)
  Sender: FDA-Public Use
  Company Number: NL-MYLANLABS-2018M1028064

PATIENT
  Sex: Female

DRUGS (2)
  1. DEXAMETHASONE. [Suspect]
     Active Substance: DEXAMETHASONE
     Indication: PROPHYLAXIS
     Dosage: 0.5 MG, TID, 1 ST TRIMESTER
     Route: 064
  2. DEXAMETHASONE. [Suspect]
     Active Substance: DEXAMETHASONE
     Indication: ADRENOGENITAL SYNDROME
     Dosage: 25 MICROGRAM/KILOGRAM, QD
     Route: 064

REACTIONS (6)
  - Learning disability [Unknown]
  - Cognitive disorder [Unknown]
  - Adrenogenital syndrome [Recovering/Resolving]
  - Foetal exposure during pregnancy [Recovered/Resolved]
  - Virilism [Recovering/Resolving]
  - Cleft lip and palate [Recovering/Resolving]
